FAERS Safety Report 6825954-5 (Version None)
Quarter: 2010Q3

REPORT INFORMATION
  Report Type: 
  Country: None (occurrence: None)
  Receive Date: 20100706
  Receipt Date: 20100507
  Transmission Date: 20110219
  Serious: Yes (Other)
  Sender: FDA-Public Use
  Company Number: 2010032473

PATIENT
  Age: 48 Year
  Sex: Female
  Weight: 54.4 kg

DRUGS (2)
  1. ZOLOFT [Suspect]
     Indication: DEPRESSION
     Dosage: 50 MG, DAILY, ORAL
     Route: 048
  2. PREVACID [Suspect]
     Dosage: ORAL
     Route: 048
     Dates: start: 20100201

REACTIONS (2)
  - DRUG INEFFECTIVE [None]
  - RESPIRATORY TRACT INFECTION [None]
